FAERS Safety Report 7394910-3 (Version None)
Quarter: 2011Q2

REPORT INFORMATION
  Report Type: 
  Country: None (occurrence: None)
  Receive Date: 20110405
  Receipt Date: 20110328
  Transmission Date: 20111010
  Serious: Yes (Other)
  Sender: FDA-Public Use
  Company Number: B0709537A

PATIENT
  Sex: Female

DRUGS (2)
  1. SINEMET [Concomitant]
     Route: 065
  2. REQUIP [Suspect]
     Indication: PARKINSON'S DISEASE
     Route: 065

REACTIONS (6)
  - HYPERSEXUALITY [None]
  - DEPENDENCE [None]
  - DRUG ABUSE [None]
  - ABNORMAL BEHAVIOUR [None]
  - SUICIDE ATTEMPT [None]
  - ALCOHOLISM [None]
